FAERS Safety Report 8495964-3 (Version None)
Quarter: 2012Q3

REPORT INFORMATION
  Report Type: 
  Country: None (occurrence: None)
  Receive Date: 20120709
  Receipt Date: 20120703
  Transmission Date: 20120928
  Serious: Yes (Hospitalization)
  Sender: FDA-Public Use
  Company Number: US-GLAXOSMITHKLINE-B0720692A

PATIENT
  Age: 72 Year
  Sex: Male
  Weight: 69.2 kg

DRUGS (4)
  1. NORVASC [Concomitant]
     Indication: HYPERTENSION
     Dosage: 5MG PER DAY
     Route: 048
     Dates: start: 20100208
  2. PAZOPANIB [Suspect]
     Indication: RENAL CELL CARCINOMA
     Dosage: 800MG PER DAY
     Route: 048
     Dates: start: 20100119
  3. IMODIUM [Concomitant]
     Indication: DIARRHOEA
     Dosage: 4MG AS REQUIRED
     Route: 048
     Dates: start: 20100310
  4. SYNTHROID [Concomitant]
     Indication: HYPERTHYROIDISM
     Dosage: 25MG PER DAY
     Route: 048
     Dates: start: 20100409

REACTIONS (1)
  - ANAEMIA [None]
